FAERS Safety Report 4652255-6 (Version None)
Quarter: 2005Q2

REPORT INFORMATION
  Report Type: 
  Country: None (occurrence: None)
  Receive Date: 20050502
  Receipt Date: 20050414
  Transmission Date: 20051028
  Serious: Yes (Death)
  Sender: FDA-Public Use
  Company Number: 2005-DE-01446GD

PATIENT
  Sex: 0

DRUGS (1)
  1. MORPHINE [Suspect]

REACTIONS (3)
  - INTENTIONAL MISUSE [None]
  - MULTIPLE DRUG OVERDOSE [None]
  - POISONING [None]
